FAERS Safety Report 15598048 (Version 1)
Quarter: 2018Q4

REPORT INFORMATION
  Report Type: Spontaneous
  Country: US (occurrence: US)
  Receive Date: 20181108
  Receipt Date: 20181108
  Transmission Date: 20190205
  Serious: Yes (Hospitalization)
  Sender: FDA-Public Use
  Company Number: US-KYOWAKIRIN-2018BKK009335

PATIENT

DRUGS (1)
  1. POTELIGEO [Suspect]
     Active Substance: MOGAMULIZUMAB-KPKC
     Indication: MYCOSIS FUNGOIDES
     Dosage: 1 MG/KG (CYCLE 1, DAY 1)
     Route: 042
     Dates: start: 20181030

REACTIONS (4)
  - Blood pressure increased [Unknown]
  - Pyrexia [Unknown]
  - Hypotension [Unknown]
  - Chills [Unknown]

NARRATIVE: CASE EVENT DATE: 20181030
